FAERS Safety Report 6170378-X (Version None)
Quarter: 2009Q2

REPORT INFORMATION
  Report Type: 
  Country: None (occurrence: None)
  Receive Date: 20090427
  Receipt Date: 20090427
  Transmission Date: 20091009
  Serious: Yes (Life-Threatening)
  Sender: FDA-Public Use
  Company Number: None

PATIENT
  Age: 61 Year
  Sex: Male
  Weight: 114 kg

DRUGS (11)
  1. CELLCEPT [Suspect]
     Indication: IMMUNOSUPPRESSION
     Dosage: 1500 PO BID
     Dates: start: 20081101, end: 20090105
  2. SULFAMETHOXAZOLE AND TRIMETHOPRIM [Suspect]
     Indication: ANTIFUNGAL PROPHYLAXIS
     Dosage: IDS MWF
     Dates: start: 20081101, end: 20090105
  3. TACROLIMUS [Concomitant]
  4. CLONIDINE [Concomitant]
  5. LANSOPRAZOLE [Concomitant]
  6. VALGANCICLOVIR HCL [Concomitant]
  7. PREDNISONE [Concomitant]
  8. FLOMAX [Concomitant]
  9. ASPIRIN [Concomitant]
  10. GABAPENTIN [Concomitant]
  11. PLAVIX [Concomitant]

REACTIONS (5)
  - CARDIAC TAMPONADE [None]
  - HYPOTENSION [None]
  - PLATELET COUNT DECREASED [None]
  - RENAL FAILURE ACUTE [None]
  - WHITE BLOOD CELL COUNT DECREASED [None]
